FAERS Safety Report 7623723-X (Version None)
Quarter: 2011Q3

REPORT INFORMATION
  Report Type: 
  Country: None (occurrence: None)
  Receive Date: 20110720
  Receipt Date: 20110715
  Transmission Date: 20111222
  Serious: Yes (Other)
  Sender: FDA-Public Use
  Company Number: US-GLAXOSMITHKLINE-A0933882A

PATIENT
  Age: 63 Year
  Sex: Male
  Weight: 93.6 kg

DRUGS (5)
  1. ASPIRIN [Concomitant]
     Dosage: 81MG PER DAY
  2. RYTHMOL SR [Suspect]
     Indication: ATRIAL TACHYCARDIA
     Dosage: 325MG TWICE PER DAY
     Route: 048
     Dates: start: 20100916
  3. VITAMIN D [Concomitant]
  4. TESTIM [Concomitant]
  5. DAILY MULTIVITAMIN [Concomitant]

REACTIONS (3)
  - DYSPNOEA [None]
  - DIZZINESS EXERTIONAL [None]
  - DEPRESSED LEVEL OF CONSCIOUSNESS [None]
